FAERS Safety Report 9377026 (Version 1)
Quarter: 2013Q3

REPORT INFORMATION
  Report Type: Spontaneous
  Country: CL (occurrence: CL)
  Receive Date: 20130701
  Receipt Date: 20130701
  Transmission Date: 20140515
  Serious: Yes (Hospitalization)
  Sender: FDA-Public Use
  Company Number: CL-PFIZER INC-2013191096

PATIENT
  Age: 22 Year
  Sex: Male

DRUGS (2)
  1. MEDROL [Suspect]
     Indication: SYSTEMIC LUPUS ERYTHEMATOSUS
     Dosage: 16 MG, 1X/DAY
     Route: 048
     Dates: start: 2009
  2. WARFARIN [Concomitant]
     Dosage: 2.5 MG, 1X/DAY
     Dates: start: 2009

REACTIONS (1)
  - Ill-defined disorder [Unknown]
